FAERS Safety Report 5972644-7 (Version None)
Quarter: 2008Q4

REPORT INFORMATION
  Report Type: 
  Country: None (occurrence: None)
  Receive Date: 20081201
  Receipt Date: 20081119
  Transmission Date: 20090506
  Serious: Yes (Death, Hospitalization)
  Sender: FDA-Public Use
  Company Number: FR-JNJFOC-20081105624

PATIENT
  Sex: Male

DRUGS (7)
  1. IXPRIM [Suspect]
     Indication: PAIN
     Route: 048
  2. SINTROM [Interacting]
     Indication: MYOCARDIAL INFARCTION
     Route: 048
  3. MONOCRIXO [Suspect]
     Indication: PAIN
     Route: 048
  4. ANTIVITAMIN K [Concomitant]
  5. LASIX [Concomitant]
  6. DIGITALINE NATIVELLE [Concomitant]
  7. HEPT-A-MYL [Concomitant]
     Dosage: 3 UNITS DAILY

REACTIONS (2)
  - DRUG INTERACTION [None]
  - RECTAL HAEMORRHAGE [None]
